FAERS Safety Report 6084082-X (Version None)
Quarter: 2009Q1

REPORT INFORMATION
  Report Type: 
  Country: None (occurrence: None)
  Receive Date: 20090217
  Receipt Date: 20090217
  Transmission Date: 20090719
  Serious: No
  Sender: FDA-Public Use
  Company Number: None

PATIENT
  Age: 57 Year
  Sex: Female
  Weight: 81.6475 kg

DRUGS (2)
  1. PREPARATION H [Suspect]
  2. SIMILAR PRODUCTS [Suspect]

REACTIONS (1)
  - MIGRAINE [None]
